FAERS Safety Report 19217054 (Version 1)
Quarter: 2021Q2

REPORT INFORMATION
  Report Type: Spontaneous
  Country: US (occurrence: US)
  Receive Date: 20210505
  Receipt Date: 20210505
  Transmission Date: 20210717
  Serious: Yes (Hospitalization)
  Sender: FDA-Public Use
  Company Number: US-MYLANLABS-2021M1026412

PATIENT
  Age: 19 Year
  Sex: Female

DRUGS (24)
  1. TRIKAFTA [Interacting]
     Active Substance: ELEXACAFTOR\IVACAFTOR\TEZACAFTOR
     Dosage: RESTARTED AS ONE TRIPLE THERAPY TABLET WITH BREAKFAST
     Route: 065
  2. TRIKAFTA [Interacting]
     Active Substance: ELEXACAFTOR\IVACAFTOR\TEZACAFTOR
     Dosage: DOSE INCREASED TO 2 TRIPLE THERAPY TABLETS IN THE MORNING
     Route: 065
  3. PIPERACILLIN/TAZOBACTAM [Concomitant]
     Active Substance: PIPERACILLIN SODIUM\TAZOBACTAM SODIUM
     Indication: PSEUDOMONAS INFECTION
     Route: 065
  4. SERTRALINE [Interacting]
     Active Substance: SERTRALINE HYDROCHLORIDE
     Dosage: 75 MILLIGRAM, QD
     Route: 065
  5. TRIKAFTA [Interacting]
     Active Substance: ELEXACAFTOR\IVACAFTOR\TEZACAFTOR
     Indication: CYSTIC FIBROSIS
     Dosage: STANDARD DOSE (2 TRIPLE THERAPY TABLETS IN THE MORNING, 1 IVACAFTOR 150?MG TABLET IN THE EVENING)
     Route: 065
     Dates: start: 201911, end: 201912
  6. TRIKAFTA [Interacting]
     Active Substance: ELEXACAFTOR\IVACAFTOR\TEZACAFTOR
     Dosage: DOSE INCREASED TO ONE AND A HALF TRIPLE THERAPY TABLETS WITH ONE AND A HALF IVACAFTOR 150?
     Route: 065
  7. TRIKAFTA [Interacting]
     Active Substance: ELEXACAFTOR\IVACAFTOR\TEZACAFTOR
     Dosage: TWO TRIPLE THERAPY TABLETS IN THE EVENING
     Route: 065
     Dates: start: 202003
  8. QUETIAPINE. [Concomitant]
     Active Substance: QUETIAPINE
     Dosage: 75 MILLIGRAM, QD 75 MG AT BEDTIME
     Route: 065
  9. CLONAZEPAM. [Concomitant]
     Active Substance: CLONAZEPAM
     Indication: MAJOR DEPRESSION
     Dosage: 0.5 MILLIGRAM, BID 0.5MG TWICE A DAY AS NEEDED
     Route: 065
  10. BUPROPION. [Concomitant]
     Active Substance: BUPROPION
     Indication: MAJOR DEPRESSION
     Dosage: 150 MILLIGRAM, QD
     Route: 065
  11. TRIKAFTA [Interacting]
     Active Substance: ELEXACAFTOR\IVACAFTOR\TEZACAFTOR
     Dosage: ONE AND A HALF TRIKAFTA TRIPLE THERAPY TABLETS WITH ONE AND A HALF TABLETS OF IVACAFTOR 150?
     Route: 065
  12. TRIKAFTA [Interacting]
     Active Substance: ELEXACAFTOR\IVACAFTOR\TEZACAFTOR
     Dosage: DOSE INCREASED TO FULL?DOSE
     Route: 065
  13. TRIKAFTA [Interacting]
     Active Substance: ELEXACAFTOR\IVACAFTOR\TEZACAFTOR
     Dosage: TWO TRIPLE THERAPY TABLETS IN THE MORNING
     Route: 065
     Dates: start: 202005
  14. IVACAFTOR [Suspect]
     Active Substance: IVACAFTOR
     Indication: CYSTIC FIBROSIS
     Dosage: STANDARD DOSE (2 TRIPLE THERAPY TABLETS IN THE MORNING AND 1 IVACAFTOR 150?MG TABLET IN EVENING)
     Route: 065
     Dates: start: 201911
  15. IVACAFTOR [Suspect]
     Active Substance: IVACAFTOR
     Dosage: ONE IVACAFTOR 150MG TABLET IN THE MORNING
     Route: 065
     Dates: start: 202003
  16. MEROPENEM. [Concomitant]
     Active Substance: MEROPENEM
     Indication: PSEUDOMONAS INFECTION
     Route: 065
  17. SERTRALINE [Interacting]
     Active Substance: SERTRALINE HYDROCHLORIDE
     Dosage: 150 MILLIGRAM, QD
     Route: 065
  18. IVACAFTOR [Suspect]
     Active Substance: IVACAFTOR
     Dosage: ONE AND A HALF IVACAFTOR 150MG TABLETS IN THE MORNING
     Route: 065
  19. CLONAZEPAM. [Concomitant]
     Active Substance: CLONAZEPAM
     Dosage: 0.5 MILLIGRAM, TID 0.5MG 3 TIMES A DAY AS NEEDED
  20. SERTRALINE [Suspect]
     Active Substance: SERTRALINE HYDROCHLORIDE
     Indication: MAJOR DEPRESSION
     Dosage: 12.5 MILLIGRAM, QD
     Route: 065
  21. QUETIAPINE. [Concomitant]
     Active Substance: QUETIAPINE
     Indication: INSOMNIA
     Dosage: 100 MILLIGRAM, QD 100 MG AT BEDTIME
     Route: 065
  22. AZTREONAM. [Concomitant]
     Active Substance: AZTREONAM
     Indication: PSEUDOMONAS INFECTION
     Route: 065
  23. SERTRALINE [Interacting]
     Active Substance: SERTRALINE HYDROCHLORIDE
     Dosage: 50 MILLIGRAM, QD DOSE INCREASED
     Route: 065
  24. CEFTAZIDIME. [Concomitant]
     Active Substance: CEFTAZIDIME
     Indication: PSEUDOMONAS INFECTION
     Route: 065

REACTIONS (8)
  - Anxiety [Not Recovered/Not Resolved]
  - Sleep paralysis [Not Recovered/Not Resolved]
  - Hypnopompic hallucination [Not Recovered/Not Resolved]
  - Suicidal ideation [Unknown]
  - Drug interaction [Unknown]
  - Affective disorder [Not Recovered/Not Resolved]
  - Depressive symptom [Not Recovered/Not Resolved]
  - Panic attack [Unknown]
